FAERS Safety Report 16975326 (Version 1)
Quarter: 2019Q4

REPORT INFORMATION
  Report Type: Spontaneous
  Country: US (occurrence: US)
  Receive Date: 20190913
  Receipt Date: 20190913
  Transmission Date: 20200122
  Serious: Yes (Other)
  Sender: FDA-Public Use
  Company Number: None

PATIENT
  Age: 61 Year
  Sex: Female
  Weight: 68.95 kg

DRUGS (2)
  1. ESTRADIOL 0.05MG/ 24 HR PATCH [Suspect]
     Active Substance: ESTRADIOL
     Indication: MENOPAUSAL SYMPTOMS
     Dates: start: 201906, end: 201908
  2. MINIVELLE [Concomitant]
     Active Substance: ESTRADIOL

REACTIONS (7)
  - Libido decreased [None]
  - Mental impairment [None]
  - Product substitution issue [None]
  - Breast tenderness [None]
  - Abdominal distension [None]
  - Back pain [None]
  - Breast pain [None]

NARRATIVE: CASE EVENT DATE: 20190625
